FAERS Safety Report 25113066 (Version 1)
Quarter: 2025Q1

REPORT INFORMATION
  Report Type: Spontaneous
  Country: GB (occurrence: GB)
  Receive Date: 20250324
  Receipt Date: 20250324
  Transmission Date: 20250409
  Serious: Yes (Death, Life-Threatening, Hospitalization, Other)
  Sender: PFIZER
  Company Number: None

PATIENT
  Age: 67 Year
  Sex: Female

DRUGS (2)
  1. METHOTREXATE SODIUM [Suspect]
     Active Substance: METHOTREXATE SODIUM
     Indication: Palindromic rheumatism
     Dosage: 15 MG, WEEKLY
     Dates: start: 20231001, end: 20250111
  2. MEROPENEM [Concomitant]
     Active Substance: MEROPENEM

REACTIONS (2)
  - Pancreatitis necrotising [Fatal]
  - Nausea [Unknown]

NARRATIVE: CASE EVENT DATE: 20250111
